FAERS Safety Report 8916619 (Version 1)
Quarter: 2012Q4

REPORT INFORMATION
  Report Type: 
  Country: US (occurrence: US)
  Receive Date: 20121120
  Receipt Date: 20121120
  Transmission Date: 20130627
  Serious: No
  Sender: FDA-Public Use
  Company Number: US-JNJFOC-20121103076

PATIENT
  Age: 86 Year
  Sex: Female
  Weight: 69.85 kg

DRUGS (2)
  1. SANDOZ FENTANYL TRANSDERMAL SYSTEM [Suspect]
     Indication: PAIN IN EXTREMITY
     Route: 062
     Dates: start: 201210, end: 201210
  2. SANDOZ FENTANYL TRANSDERMAL SYSTEM [Suspect]
     Indication: PAIN IN EXTREMITY
     Route: 062
     Dates: start: 201202, end: 201210

REACTIONS (2)
  - Insomnia [Not Recovered/Not Resolved]
  - Incorrect drug administration duration [Recovered/Resolved]
